FAERS Safety Report 6444286-0 (Version None)
Quarter: 2009Q4

REPORT INFORMATION
  Report Type: 
  Country: None (occurrence: None)
  Receive Date: 20091118
  Receipt Date: 20091103
  Transmission Date: 20100525
  Serious: No
  Sender: FDA-Public Use
  Company Number: US-ROXANE LABORATORIES, INC.-2009-RO-01136RO

PATIENT
  Age: 56 Year
  Sex: Female

DRUGS (14)
  1. MORPHINE [Suspect]
     Indication: BACK PAIN
     Dosage: 120 MG
     Route: 048
  2. MORPHINE [Suspect]
     Indication: MULTIPLE FRACTURES
  3. MORPHINE [Suspect]
     Indication: ARTHRITIS
  4. MORPHINE [Suspect]
     Indication: NEUROPATHY PERIPHERAL
  5. MORPHINE [Suspect]
     Indication: SCOLIOSIS
  6. MS CONTIN [Suspect]
     Indication: BACK PAIN
     Dosage: 400 MG
     Route: 048
  7. MS CONTIN [Suspect]
     Indication: MULTIPLE FRACTURES
  8. MS CONTIN [Suspect]
     Indication: ARTHRITIS
  9. MS CONTIN [Suspect]
     Indication: NEUROPATHY PERIPHERAL
  10. MS CONTIN [Suspect]
     Indication: SCOLIOSIS
  11. DIAZEPAM [Concomitant]
     Indication: NERVOUSNESS
  12. MUSCLE RELAXER [Concomitant]
     Indication: MUSCLE RELAXANT THERAPY
  13. ELAVIL [Concomitant]
     Indication: NEUROPATHY PERIPHERAL
     Dosage: 50 MG
  14. NORVASC [Concomitant]
     Indication: HYPERTENSION
     Dosage: 10 MG

REACTIONS (8)
  - ACTIVITIES OF DAILY LIVING IMPAIRED [None]
  - ASTHENIA [None]
  - BALANCE DISORDER [None]
  - CLUMSINESS [None]
  - DEPRESSION [None]
  - FALL [None]
  - GAIT DISTURBANCE [None]
  - WEIGHT INCREASED [None]
